FAERS Safety Report 17116142 (Version 1)
Quarter: 2019Q4

REPORT INFORMATION
  Report Type: Spontaneous
  Country: FR (occurrence: FR)
  Receive Date: 20191205
  Receipt Date: 20191205
  Transmission Date: 20200122
  Serious: Yes (Hospitalization)
  Sender: FDA-Public Use
  Company Number: FR-MYLANLABS-2019M1119005

PATIENT
  Age: 77 Year
  Sex: Female
  Weight: 65 kg

DRUGS (15)
  1. BISOPROLOL [Concomitant]
     Active Substance: BISOPROLOL
     Dosage: UNK
  2. LASILIX                            /00032601/ [Concomitant]
     Active Substance: FUROSEMIDE
  3. UVEDOSE [Concomitant]
     Active Substance: CHOLECALCIFEROL
  4. KARDEGIC [Concomitant]
     Active Substance: ASPIRIN DL-LYSINE
  5. TAHOR [Concomitant]
     Active Substance: ATORVASTATIN CALCIUM
  6. LEVOTHYROX [Concomitant]
     Active Substance: LEVOTHYROXINE
  7. TRIMEBUTINE [Concomitant]
     Active Substance: TRIMEBUTINE
  8. IPERTEN [Concomitant]
     Active Substance: MANIDIPINE
  9. NOVOMIX [Concomitant]
     Active Substance: INSULIN ASPART
  10. OMEPRAZOLE. [Concomitant]
     Active Substance: OMEPRAZOLE
  11. ORENCIA [Concomitant]
     Active Substance: ABATACEPT
  12. EUPRESSYL                          /00631801/ [Concomitant]
     Active Substance: URAPIDIL
  13. PROLIA [Concomitant]
     Active Substance: DENOSUMAB
  14. NOVORAPID [Concomitant]
     Active Substance: INSULIN ASPART
  15. CANDESARTAN. [Suspect]
     Active Substance: CANDESARTAN
     Indication: HYPERTENSION
     Dosage: 32 MILLIGRAM, QD
     Route: 048
     Dates: start: 201707, end: 20190109

REACTIONS (1)
  - Acute kidney injury [Recovered/Resolved]

NARRATIVE: CASE EVENT DATE: 20190109
